FAERS Safety Report 16697748 (Version 1)
Quarter: 2019Q3

REPORT INFORMATION
  Report Type: Spontaneous
  Country: FR (occurrence: FR)
  Receive Date: 20190813
  Receipt Date: 20190813
  Transmission Date: 20191004
  Serious: Yes (Death)
  Sender: FDA-Public Use
  Company Number: FR-MYLANLABS-2019M1075177

PATIENT
  Age: 65 Year
  Sex: Female
  Weight: 83 kg

DRUGS (7)
  1. CUBICIN [Concomitant]
     Active Substance: DAPTOMYCIN
     Indication: OSTEITIS
     Dosage: 800 MILLIGRAM, QD
     Route: 042
     Dates: start: 20190110
  2. MEROPENEM ANHYDROUS [Concomitant]
     Active Substance: MEROPENEM ANHYDROUS
     Indication: OSTEITIS
     Dosage: 3 GRAM, QD
     Route: 048
     Dates: start: 20190110
  3. VANCOMYCIN [Suspect]
     Active Substance: VANCOMYCIN
     Indication: OSTEITIS
     Dosage: 1 GRAM, QD
     Route: 042
     Dates: start: 20181207, end: 20190110
  4. IZILOX [Concomitant]
     Active Substance: MOXIFLOXACIN HYDROCHLORIDE
     Indication: OSTEITIS
     Dosage: 400 MILLIGRAM, QD
     Route: 048
     Dates: start: 20190102, end: 20190106
  5. CIPROFLOXACINE                     /00697201/ [Concomitant]
     Active Substance: CIPROFLOXACIN
     Indication: OSTEITIS
     Dosage: 500 MILLIGRAM, QD
     Route: 042
     Dates: start: 20190106, end: 20190110
  6. TAZOCILLINE [Suspect]
     Active Substance: PIPERACILLIN SODIUM\TAZOBACTAM SODIUM
     Indication: OSTEITIS
     Dosage: 12 GRAM, QD
     Route: 042
     Dates: start: 20181210, end: 20190102
  7. METRONIDAZOLE. [Concomitant]
     Active Substance: METRONIDAZOLE
     Indication: OSTEITIS
     Dosage: 750 MILLIGRAM, QD
     Route: 042
     Dates: start: 20190106, end: 20190110

REACTIONS (2)
  - Drug reaction with eosinophilia and systemic symptoms [Fatal]
  - Cheilitis [Fatal]

NARRATIVE: CASE EVENT DATE: 20190106
